FAERS Safety Report 6701140-4 (Version None)
Quarter: 2010Q2

REPORT INFORMATION
  Report Type: 
  Country: None (occurrence: None)
  Receive Date: 20100428
  Receipt Date: 20100428
  Transmission Date: 20101027
  Serious: Yes (Other)
  Sender: FDA-Public Use
  Company Number: None

PATIENT
  Age: 57 Year
  Sex: Female

DRUGS (1)
  1. GABAPENTIN [Suspect]
     Dosage: TAKE 8 CAPSULES DAILY
     Dates: start: 20100327

REACTIONS (2)
  - PRODUCT CONTAMINATION [None]
  - PRODUCT TASTE ABNORMAL [None]
